FAERS Safety Report 25256302 (Version 1)
Quarter: 2025Q2

REPORT INFORMATION
  Report Type: Spontaneous
  Country: HK (occurrence: HK)
  Receive Date: 20250430
  Receipt Date: 20250430
  Transmission Date: 20250717
  Serious: Yes (Other)
  Sender: AMGEN
  Company Number: HK-AMGEN-HKGSP2025081607

PATIENT

DRUGS (6)
  1. TRASTUZUMAB [Suspect]
     Active Substance: TRASTUZUMAB
     Indication: Gastric cancer
     Route: 065
  2. FILGRASTIM [Suspect]
     Active Substance: FILGRASTIM
     Indication: Prophylaxis
     Route: 065
  3. DOCETAXEL [Concomitant]
     Active Substance: DOCETAXEL
     Dosage: 50 MILLIGRAM/SQ. METER, Q2WK
     Route: 040
  4. OXALIPLATIN [Concomitant]
     Active Substance: OXALIPLATIN
     Dosage: 85 MILLIGRAM/SQ. METER, Q2WK
     Route: 040
  5. LEUCOVORIN [Concomitant]
     Active Substance: LEUCOVORIN\LEUCOVORIN CALCIUM
     Dosage: 200 MILLIGRAM/SQ. METER, Q2WK
     Route: 040
  6. FLUOROURACIL [Concomitant]
     Active Substance: FLUOROURACIL
     Dosage: 2600 MILLIGRAM/SQ. METER, Q2WK, (24-HOUR CONTINUOUS INFUSION)

REACTIONS (13)
  - Encephalopathy [Unknown]
  - Neutropenia [Unknown]
  - Syncope [Unknown]
  - Febrile neutropenia [Unknown]
  - Malaise [Unknown]
  - Therapy partial responder [Unknown]
  - Disease progression [Unknown]
  - Nausea [Unknown]
  - Vomiting [Unknown]
  - Diarrhoea [Unknown]
  - Infection [Unknown]
  - Blood creatinine increased [Unknown]
  - Electrolyte imbalance [Unknown]
